FAERS Safety Report 22270956 (Version 1)
Quarter: 2023Q2

REPORT INFORMATION
  Report Type: Report from Study
  Country: GB (occurrence: None)
  Receive Date: 20230501
  Receipt Date: 20230501
  Transmission Date: 20230722
  Serious: Yes (Other)
  Sender: FDA-Public Use
  Company Number: 2021A616648

PATIENT
  Age: 46 Year
  Sex: Female

DRUGS (116)
  1. ASTRAZENECA COVID-19 VACCINE [Suspect]
     Active Substance: AZD-1222
     Indication: COVID-19 immunisation
     Dosage: DOSE 1
     Route: 030
     Dates: start: 20210416
  2. ASTRAZENECA COVID-19 VACCINE [Suspect]
     Active Substance: AZD-1222
     Indication: COVID-19 immunisation
     Dosage: DOSE 2
     Route: 030
     Dates: start: 20210703
  3. ASTRAZENECA COVID-19 VACCINE [Suspect]
     Active Substance: AZD-1222
     Indication: COVID-19 immunisation
     Dosage: 0.5ML UNKNOWN
     Route: 030
     Dates: start: 20210204
  4. ASACOL [Suspect]
     Active Substance: MESALAMINE
     Indication: Colitis ulcerative
     Dosage: 4.8 GRAM, QD
     Route: 048
     Dates: start: 20161001
  5. ASACOL [Suspect]
     Active Substance: MESALAMINE
     Indication: Colitis ulcerative
     Dosage: 3 DOSAGE FORM, Q12H
     Route: 048
     Dates: start: 20161001
  6. ASACOL [Suspect]
     Active Substance: MESALAMINE
     Indication: Colitis ulcerative
     Dosage: 2.4 GRAM, QD
     Route: 048
     Dates: start: 20161001
  7. ASACOL [Suspect]
     Active Substance: MESALAMINE
     Indication: Colitis ulcerative
     Dosage: 6 DOSAGE FORM, QD
     Route: 048
     Dates: start: 20161001
  8. ASACOL [Suspect]
     Active Substance: MESALAMINE
     Indication: Colitis ulcerative
     Dosage: 3 GRAM, QD
     Route: 048
     Dates: start: 20161001
  9. BUDESONIDE [Suspect]
     Active Substance: BUDESONIDE
     Indication: Product used for unknown indication
     Dosage: 1DOSAGE FORM, QD
     Route: 048
     Dates: start: 201707
  10. BUDESONIDE [Suspect]
     Active Substance: BUDESONIDE
     Indication: Colitis ulcerative
     Dosage: 1DOSAGE FORM, QD
     Route: 048
     Dates: start: 201707
  11. BUDESONIDE [Suspect]
     Active Substance: BUDESONIDE
     Indication: Product used for unknown indication
     Dosage: 8 DOSAGE FORM, Q8WK
     Route: 048
     Dates: start: 200707
  12. BUDESONIDE [Suspect]
     Active Substance: BUDESONIDE
     Indication: Colitis ulcerative
     Dosage: 8 DOSAGE FORM, Q8WK
     Route: 048
     Dates: start: 200707
  13. CORTIFOAM [Suspect]
     Active Substance: HYDROCORTISONE ACETATE
     Indication: Product used for unknown indication
     Dosage: 8 DOSAGE FORM, Q8WK
     Route: 048
     Dates: start: 201707
  14. CORTIFOAM [Suspect]
     Active Substance: HYDROCORTISONE ACETATE
     Indication: Product used for unknown indication
     Dosage: 1 DOSAGE FORM, QD
     Route: 048
     Dates: start: 201707
  15. BUDESONIDE [Suspect]
     Active Substance: BUDESONIDE
     Indication: Product used for unknown indication
     Dosage: 8 DOSAGE FORM, Q8WK
     Route: 048
     Dates: start: 200707
  16. ENTYVIO [Suspect]
     Active Substance: VEDOLIZUMAB
     Indication: Colitis ulcerative
     Route: 042
     Dates: start: 2017, end: 2017
  17. ENTYVIO [Suspect]
     Active Substance: VEDOLIZUMAB
     Indication: Product used for unknown indication
     Route: 042
     Dates: start: 2017, end: 2017
  18. ENTYVIO [Suspect]
     Active Substance: VEDOLIZUMAB
     Indication: Deep vein thrombosis
     Route: 042
     Dates: start: 2017, end: 2017
  19. ENTYVIO [Suspect]
     Active Substance: VEDOLIZUMAB
     Indication: Colitis ulcerative
     Route: 048
     Dates: start: 2017, end: 2017
  20. ENTYVIO [Suspect]
     Active Substance: VEDOLIZUMAB
     Indication: Product used for unknown indication
     Route: 048
     Dates: start: 2017, end: 2017
  21. ENTYVIO [Suspect]
     Active Substance: VEDOLIZUMAB
     Indication: Deep vein thrombosis
     Route: 048
     Dates: start: 2017, end: 2017
  22. ENTYVIO [Suspect]
     Active Substance: VEDOLIZUMAB
     Indication: Colitis ulcerative
     Dosage: 1 DOSAGE FORM, QD
     Route: 048
  23. ENTYVIO [Suspect]
     Active Substance: VEDOLIZUMAB
     Indication: Product used for unknown indication
     Dosage: 1 DOSAGE FORM, QD
     Route: 048
  24. ENTYVIO [Suspect]
     Active Substance: VEDOLIZUMAB
     Indication: Deep vein thrombosis
     Dosage: 1 DOSAGE FORM, QD
     Route: 048
  25. ENTYVIO [Suspect]
     Active Substance: VEDOLIZUMAB
     Indication: Colitis ulcerative
     Route: 048
     Dates: start: 2017, end: 2017
  26. ENTYVIO [Suspect]
     Active Substance: VEDOLIZUMAB
     Indication: Product used for unknown indication
     Route: 048
     Dates: start: 2017, end: 2017
  27. ENTYVIO [Suspect]
     Active Substance: VEDOLIZUMAB
     Indication: Deep vein thrombosis
     Route: 048
     Dates: start: 2017, end: 2017
  28. HYDROCORTISONE [Suspect]
     Active Substance: HYDROCORTISONE
     Indication: Colitis ulcerative
     Dosage: 8 DOSAGE FORM, Q8WK
     Route: 048
     Dates: start: 201807
  29. HYDROCORTISONE [Suspect]
     Active Substance: HYDROCORTISONE
     Indication: Colitis ulcerative
     Dosage: 1 DOSAGE FORM, QD
     Route: 048
     Dates: start: 201807
  30. MESALAMINE [Suspect]
     Active Substance: MESALAMINE
     Indication: Colitis ulcerative
     Dates: start: 20170101, end: 20170901
  31. MESALAMINE [Suspect]
     Active Substance: MESALAMINE
     Indication: Colitis ulcerative
     Dates: start: 20160101, end: 20160101
  32. MESALAMINE [Suspect]
     Active Substance: MESALAMINE
     Indication: Colitis ulcerative
     Dosage: 4.8 GRAM, QD
     Dates: start: 20161001
  33. MESALAMINE [Suspect]
     Active Substance: MESALAMINE
     Indication: Colitis ulcerative
     Dosage: 3 DOSAGE FORM, BID
     Dates: start: 201610
  34. MESALAMINE [Suspect]
     Active Substance: MESALAMINE
     Indication: Colitis ulcerative
     Dosage: 2.4 GRAM, QD
     Dates: start: 20161001
  35. MESALAMINE [Suspect]
     Active Substance: MESALAMINE
     Indication: Colitis ulcerative
     Dosage: 6 DOSAGE FORM, QD
     Dates: start: 20161001
  36. MESALAMINE [Suspect]
     Active Substance: MESALAMINE
     Indication: Colitis ulcerative
     Dosage: 50 MILLIGRAM50.0MG UNKNOWN
     Dates: start: 20160101, end: 20161001
  37. MESALAMINE [Suspect]
     Active Substance: MESALAMINE
     Indication: Colitis ulcerative
     Dosage: UNKNOWN
     Dates: start: 2017, end: 201709
  38. MESALAMINE [Suspect]
     Active Substance: MESALAMINE
     Indication: Colitis ulcerative
     Dosage: 50 MILLIGRAM UNKNOWN
     Dates: start: 20170101, end: 20170901
  39. MESALAMINE [Suspect]
     Active Substance: MESALAMINE
     Indication: Colitis ulcerative
     Route: 048
     Dates: start: 20160101, end: 20161001
  40. MESALAMINE [Suspect]
     Active Substance: MESALAMINE
     Indication: Colitis ulcerative
     Route: 048
     Dates: start: 20160101, end: 201610
  41. MESALAMINE [Suspect]
     Active Substance: MESALAMINE
     Indication: Colitis ulcerative
     Dosage: 2.4G UNKNOWN
     Route: 048
     Dates: start: 201601, end: 201610
  42. WARFARIN [Suspect]
     Active Substance: WARFARIN
     Indication: Deep vein thrombosis
     Dates: start: 2009
  43. WARFARIN SODIUM [Suspect]
     Active Substance: WARFARIN SODIUM
     Indication: Deep vein thrombosis
     Dosage: 1 DOSAGE FORM, QD
     Route: 048
     Dates: start: 201707
  44. WARFARIN SODIUM [Suspect]
     Active Substance: WARFARIN SODIUM
     Indication: Deep vein thrombosis
     Dosage: 8 DOSAGE FORM, Q8WK
     Route: 048
     Dates: start: 201707
  45. WARFARIN SODIUM [Suspect]
     Active Substance: WARFARIN SODIUM
     Indication: Deep vein thrombosis
     Route: 048
     Dates: end: 2009
  46. ADALIMUMAB [Suspect]
     Active Substance: ADALIMUMAB
     Indication: Crohn^s disease
     Dosage: 8.0DF UNKNOWN
     Route: 048
     Dates: start: 201707
  47. INFLIXIMAB [Suspect]
     Active Substance: INFLIXIMAB
     Indication: Crohn^s disease
     Dosage: UNK, Q8WK
     Route: 042
     Dates: start: 20170101, end: 20170901
  48. INFLIXIMAB [Suspect]
     Active Substance: INFLIXIMAB
     Indication: Crohn^s disease
     Dosage: 5 MILLIGRAM/KILOGRAM, Q8WK
     Route: 042
     Dates: start: 20170101, end: 20170901
  49. INFLIXIMAB [Suspect]
     Active Substance: INFLIXIMAB
     Indication: Crohn^s disease
     Dosage: 5 MILLIGRAM/KILOGRAM, Q8WK
     Route: 042
     Dates: start: 20171019
  50. ASTRAZENECA COVID-19 VACCINE [Suspect]
     Active Substance: AZD-1222
     Indication: COVID-19 immunisation
     Dosage: DOSE 1
     Route: 030
     Dates: start: 2019
  51. ASTRAZENECA COVID-19 VACCINE [Suspect]
     Active Substance: AZD-1222
     Indication: COVID-19 immunisation
     Dosage: DOSE 2
     Route: 030
     Dates: start: 20210318
  52. DAPAGLIFLOZIN [Suspect]
     Active Substance: DAPAGLIFLOZIN
     Indication: Cardiac failure chronic
     Dosage: 10 ONCE DAILY MORNING
     Route: 048
     Dates: start: 20230310, end: 20230331
  53. ASTRAZENECA COVID-19 VACCINE [Suspect]
     Active Substance: AZD-1222
     Dosage: DOSE 1
     Route: 030
     Dates: start: 20210130
  54. ASTRAZENECA COVID-19 VACCINE [Suspect]
     Active Substance: AZD-1222
     Dosage: DOSE 2
     Route: 030
     Dates: start: 20210423
  55. ASTRAZENECA COVID-19 VACCINE [Suspect]
     Active Substance: AZD-1222
     Dosage: DOSE 1
     Route: 030
  56. MINERAL OIL [Concomitant]
     Active Substance: MINERAL OIL
     Indication: Ill-defined disorder
     Dosage: APPLY THREE TIMES A DAY AS REQUIRED TO DRY SKIN
     Dates: start: 20230412
  57. CANDESARTAN [Suspect]
     Active Substance: CANDESARTAN
  58. LATANOPROST [Concomitant]
     Active Substance: LATANOPROST
     Indication: Ill-defined disorder
     Dosage: ONE DROP ONCE DAILY IN BOTH EYES
     Dates: start: 20230412
  59. FOLIC ACID [Concomitant]
     Active Substance: FOLIC ACID
     Indication: Ill-defined disorder
     Dosage: TAKE ONE DAILY FOR 4 MONTHS ONLY
     Dates: start: 20230220
  60. FESOTERODINE FUMARATE [Concomitant]
     Active Substance: FESOTERODINE FUMARATE
     Indication: Ill-defined disorder
     Dosage: TAKE TWO DAILY
     Dates: start: 20220628
  61. DORZOLAMIDE [Concomitant]
     Active Substance: DORZOLAMIDE
     Indication: Ill-defined disorder
     Dosage: ONE DROP TWICE DAILY IN THE RIGHT EYE ONLY
     Dates: start: 20220628
  62. ATORVASTATIN [Concomitant]
     Active Substance: ATORVASTATIN
     Indication: Ill-defined disorder
     Dosage: ONE TO BE TAKEN AT NIGHT
     Dates: start: 20220628
  63. AMLODIPINE [Concomitant]
     Active Substance: AMLODIPINE BESYLATE
     Indication: Ill-defined disorder
     Dosage: TAKE ONE DAILY
     Dates: start: 20220805, end: 20230220
  64. PREDNISONE [Suspect]
     Active Substance: PREDNISONE
     Indication: Colitis ulcerative
     Dosage: 50 MILLIGRAM
     Dates: start: 2009, end: 2009
  65. PREDNISONE [Suspect]
     Active Substance: PREDNISONE
     Indication: Colitis ulcerative
     Dates: start: 2017
  66. SULFASALAZINE [Suspect]
     Active Substance: SULFASALAZINE
     Indication: Product used for unknown indication
     Dates: start: 2009, end: 2016
  67. SULFASALAZINE [Suspect]
     Active Substance: SULFASALAZINE
     Indication: Product used for unknown indication
     Dates: start: 201601, end: 201601
  68. SULFASALAZINE [Suspect]
     Active Substance: SULFASALAZINE
     Indication: Product used for unknown indication
     Dates: start: 20090101, end: 20160101
  69. SULFASALAZINE [Suspect]
     Active Substance: SULFASALAZINE
     Indication: Product used for unknown indication
     Dates: start: 201709, end: 201709
  70. ALBENDAZOLE [Suspect]
     Active Substance: ALBENDAZOLE
     Indication: Colitis ulcerative
     Dates: start: 2017, end: 2017
  71. HUMIRA [Suspect]
     Active Substance: ADALIMUMAB
     Indication: Ill-defined disorder
     Dosage: 8 DOSAGE FORM8.0DF UNKNOWN
     Dates: start: 201707
  72. HUMIRA [Suspect]
     Active Substance: ADALIMUMAB
     Indication: Deep vein thrombosis
     Dosage: 8 DOSAGE FORM8.0DF UNKNOWN
     Dates: start: 201707
  73. METHOTREXATE [Suspect]
     Active Substance: METHOTREXATE
     Indication: Colitis ulcerative
     Dates: start: 201709, end: 201709
  74. METHOTREXATE [Suspect]
     Active Substance: METHOTREXATE
     Indication: Colitis ulcerative
     Dates: start: 20090101, end: 20160101
  75. XELJANZ [Concomitant]
     Active Substance: TOFACITINIB CITRATE
     Indication: Colitis ulcerative
     Dosage: 5 MILLIGRAM, BID
     Route: 048
  76. EPINEPHRINE [Suspect]
     Active Substance: EPINEPHRINE
  77. ASPIRIN [Suspect]
     Active Substance: ASPIRIN
     Dosage: MORNING
  78. MEBEVERINE [Suspect]
     Active Substance: MEBEVERINE
  79. ESCITALOPRAM [Suspect]
     Active Substance: ESCITALOPRAM OXALATE
  80. FUROSEMIDE [Suspect]
     Active Substance: FUROSEMIDE
     Dosage: MORNING
  81. GABAPENTIN [Suspect]
     Active Substance: GABAPENTIN
  82. LEVOTHYROXINE [Suspect]
     Active Substance: LEVOTHYROXINE
  83. CHOLECALCIFEROL [Suspect]
     Active Substance: CHOLECALCIFEROL
  84. METFORMIN [Suspect]
     Active Substance: METFORMIN HYDROCHLORIDE
  85. OMEPRAZOLE [Suspect]
     Active Substance: OMEPRAZOLE
  86. OXYCODONE [Suspect]
     Active Substance: OXYCODONE
  87. ACETAMINOPHEN [Suspect]
     Active Substance: ACETAMINOPHEN
  88. ROSUVASTATIN [Suspect]
     Active Substance: ROSUVASTATIN
     Dosage: NIGHT
  89. FELODIPINE [Suspect]
     Active Substance: FELODIPINE
     Indication: Hypertension
     Route: 048
     Dates: start: 20220403, end: 20220403
  90. ESOMEPRAZOLE [Suspect]
     Active Substance: ESOMEPRAZOLE
     Indication: Gastritis
     Route: 048
     Dates: start: 20230305
  91. CALCIUM CARBONATE\CHOLECALCIFEROL [Concomitant]
     Active Substance: CALCIUM CARBONATE\CHOLECALCIFEROL
     Route: 048
  92. GAVISCON [Concomitant]
     Active Substance: ALUMINUM HYDROXIDE\MAGNESIUM CARBONATE
  93. RENNIE [Concomitant]
  94. ASPIRIN [Concomitant]
     Active Substance: ASPIRIN
     Indication: Ill-defined disorder
     Dosage: ONE TO BE TAKEN IN THE MORNING
     Dates: start: 20230117
  95. BISOPROLOL [Concomitant]
     Active Substance: BISOPROLOL
     Indication: Ill-defined disorder
     Dosage: TAKE ONE DAILY
     Dates: start: 20230127
  96. CITALOPRAM [Concomitant]
     Active Substance: CITALOPRAM HYDROBROMIDE
     Indication: Ill-defined disorder
     Dosage: ONE TO BE TAKEN DAILY
     Dates: start: 20230117
  97. DAPAGLIFLOZIN [Concomitant]
     Active Substance: DAPAGLIFLOZIN
     Indication: Ill-defined disorder
     Dosage: TAKE ONE DAILY
     Dates: start: 20230316, end: 20230425
  98. LANSOPRAZOLE [Concomitant]
     Active Substance: LANSOPRAZOLE
     Indication: Ill-defined disorder
     Dosage: ONE TABLET IN THE MORNING TO PROTECT THE STOMAC
     Dates: start: 20230117
  99. LYRICA [Concomitant]
     Active Substance: PREGABALIN
     Indication: Ill-defined disorder
     Dosage: PREGABALIN ONE TO BE TAKEN TWICE A DAY
     Dates: start: 20230117
  100. ACETAMINOPHEN [Concomitant]
     Active Substance: ACETAMINOPHEN
     Indication: Ill-defined disorder
     Dosage: TAKE ONE OR TWO TABLETS EVERY 4 TO 6 HOURS WHEN
     Dates: start: 20230117
  101. RAMIPRIL [Concomitant]
     Active Substance: RAMIPRIL
     Indication: Ill-defined disorder
     Dosage: TAKE ONE DAILY
     Dates: start: 20230126
  102. TAMSULOSIN HYDROCHLORIDE [Concomitant]
     Active Substance: TAMSULOSIN HYDROCHLORIDE
     Indication: Ill-defined disorder
     Dosage: TAKE ONE DAILY
     Dates: start: 20230117
  103. ASTRAZENECA COVID-19 VACCINE [Suspect]
     Active Substance: AZD-1222
     Dosage: DOSE 1;
     Route: 030
     Dates: start: 20210315
  104. ASTRAZENECA COVID-19 VACCINE [Suspect]
     Active Substance: AZD-1222
     Dosage: DOSE 2
     Route: 030
     Dates: start: 20210521
  105. ASTRAZENECA COVID-19 VACCINE [Suspect]
     Active Substance: AZD-1222
     Dosage: DOSE 1
     Route: 030
     Dates: start: 20210319
  106. COMIRNATY [Suspect]
     Active Substance: TOZINAMERAN
     Dosage: DOSE 3
     Dates: start: 20220322
  107. ASTRAZENECA COVID-19 VACCINE [Suspect]
     Active Substance: AZD-1222
     Dosage: DOSE 2
     Route: 030
     Dates: start: 20210713
  108. ASTRAZENECA COVID-19 VACCINE [Suspect]
     Active Substance: AZD-1222
     Dosage: DOSE 1
     Route: 030
     Dates: start: 20210508
  109. FESOTERODINE FUMARATE [Suspect]
     Active Substance: FESOTERODINE FUMARATE
     Dosage: TAKE TWO DAILY
     Dates: start: 20220628
  110. POLYETHYLENE GLYCOL 3350\POTASSIUM CHLORIDE\SODIUM BICARBONATE\SODIUM [Suspect]
     Active Substance: POLYETHYLENE GLYCOL 3350\POTASSIUM CHLORIDE\SODIUM BICARBONATE\SODIUM CHLORIDE
     Dosage: TAKE ONE UP TO TWICE A DAY AS REQUIRED
     Dates: start: 20230412
  111. LATANOPROST [Suspect]
     Active Substance: LATANOPROST
     Dosage: APPLY ONE DROP ONCE DAILY TO BOTH EYES
     Dates: start: 20220628, end: 20230413
  112. MOVICOL [Concomitant]
     Active Substance: POLYETHYLENE GLYCOL 3350\POTASSIUM CHLORIDE\SODIUM BICARBONATE\SODIUM CHLORIDE
     Dosage: TWO SACHET BD
     Dates: start: 20220628, end: 20230320
  113. NITROFURANTOIN [Concomitant]
     Active Substance: NITROFURANTOIN
     Dosage: TAKE ONE CAPSULE, TWICE DAILY
     Dates: start: 20230413
  114. RIVAROXABAN [Concomitant]
     Active Substance: RIVAROXABAN
     Dosage: TAKE ONE DAILY
     Dates: start: 20220628
  115. BETNOVATE [Concomitant]
     Active Substance: BETAMETHASONE
     Dosage: APPLY TO THE AFFECTED AREA(S) ONCE OR TWICE A DAY;
     Dates: start: 20221220
  116. ASTRAZENECA COVID-19 VACCINE [Suspect]
     Active Substance: AZD-1222
     Dosage: DOSE 1
     Route: 030
     Dates: start: 20210215

REACTIONS (53)
  - Colitis ulcerative [Unknown]
  - Frequent bowel movements [Unknown]
  - Deep vein thrombosis [Unknown]
  - Impaired quality of life [Unknown]
  - Condition aggravated [Unknown]
  - Weight decreased [Unknown]
  - Off label use [Unknown]
  - Bronchiectasis [Unknown]
  - Product use in unapproved indication [Unknown]
  - Drug ineffective [Unknown]
  - Loss of personal independence in daily activities [Unknown]
  - Tubulointerstitial nephritis [Recovering/Resolving]
  - Pulmonary embolism [Recovered/Resolved with Sequelae]
  - Cerebrovascular accident [Recovered/Resolved with Sequelae]
  - Fatigue [Recovered/Resolved]
  - Pyrexia [Recovered/Resolved]
  - Pain [Recovered/Resolved]
  - Somnolence [Recovered/Resolved]
  - Headache [Recovered/Resolved]
  - Pain in extremity [Recovered/Resolved]
  - Rhinitis [Not Recovered/Not Resolved]
  - Catarrh [Not Recovered/Not Resolved]
  - Inappropriate schedule of product administration [Not Recovered/Not Resolved]
  - Rectal haemorrhage [Unknown]
  - Stress [Unknown]
  - Intentional product use issue [Not Recovered/Not Resolved]
  - Impaired work ability [Unknown]
  - Medication error [Unknown]
  - Steroid dependence [Unknown]
  - Haematochezia [Unknown]
  - Accidental overdose [Recovered/Resolved]
  - Confusional state [Unknown]
  - Gingival pain [Recovered/Resolved with Sequelae]
  - Adverse drug reaction [Unknown]
  - COVID-19 [Recovered/Resolved with Sequelae]
  - Burns second degree [Recovered/Resolved]
  - Arthritis [Not Recovered/Not Resolved]
  - Tinnitus [Not Recovered/Not Resolved]
  - Parosmia [Not Recovered/Not Resolved]
  - Rash [Not Recovered/Not Resolved]
  - Eczema [Recovered/Resolved]
  - Swollen tongue [Recovered/Resolved]
  - Nightmare [Recovered/Resolved]
  - Systemic lupus erythematosus [Recovered/Resolved with Sequelae]
  - Hypopnoea [Recovered/Resolved]
  - Migraine [Recovering/Resolving]
  - Vertigo [Recovering/Resolving]
  - Cardiac murmur [Recovering/Resolving]
  - Pain in extremity [Recovered/Resolved]
  - Palpitations [Not Recovered/Not Resolved]
  - Dysgeusia [Not Recovered/Not Resolved]
  - Depression [Recovered/Resolved]
  - Abdominal discomfort [Not Recovered/Not Resolved]

NARRATIVE: CASE EVENT DATE: 20080101
